FAERS Safety Report 6923695-7 (Version None)
Quarter: 2010Q3

REPORT INFORMATION
  Report Type: 
  Country: None (occurrence: None)
  Receive Date: 20100813
  Receipt Date: 20100809
  Transmission Date: 20110219
  Serious: Yes (Death, Other)
  Sender: FDA-Public Use
  Company Number: B0669547A

PATIENT
  Sex: Female

DRUGS (4)
  1. EPZICOM [Suspect]
     Indication: ACQUIRED IMMUNODEFICIENCY SYNDROME
     Dosage: 1IUAX PER DAY
     Route: 048
     Dates: start: 20091120, end: 20100204
  2. STOCRIN [Concomitant]
     Indication: ACQUIRED IMMUNODEFICIENCY SYNDROME
     Dosage: 600MG PER DAY
     Route: 048
     Dates: start: 20081225, end: 20100204
  3. TRUVADA [Concomitant]
     Indication: ACQUIRED IMMUNODEFICIENCY SYNDROME
     Dosage: 1IUAX PER DAY
     Route: 048
     Dates: start: 20081225, end: 20091119
  4. ZITHROMAC [Concomitant]
     Indication: OPPORTUNISTIC INFECTION PROPHYLAXIS
     Route: 048
     Dates: start: 20081225, end: 20100204

REACTIONS (8)
  - ABNORMAL BEHAVIOUR [None]
  - ALTERED STATE OF CONSCIOUSNESS [None]
  - DUODENAL OBSTRUCTION [None]
  - LEUKOENCEPHALOPATHY [None]
  - MULTI-ORGAN FAILURE [None]
  - PANCYTOPENIA [None]
  - SOLILOQUY [None]
  - VOMITING [None]
